FAERS Safety Report 18032972 (Version 2)
Quarter: 2020Q3

REPORT INFORMATION
  Report Type: Spontaneous
  Country: US (occurrence: US)
  Receive Date: 20200716
  Receipt Date: 20200820
  Transmission Date: 20201103
  Serious: No
  Sender: FDA-Public Use
  Company Number: US-SA-2020SA183311

PATIENT

DRUGS (5)
  1. DUPIXENT [Suspect]
     Active Substance: DUPILUMAB
     Indication: PSORIATIC ARTHROPATHY
     Dosage: 300 MG, QOW
     Route: 058
  2. VANICREAM [Concomitant]
     Active Substance: TITANIUM DIOXIDE\ZINC OXIDE
  3. DUPIXENT [Suspect]
     Active Substance: DUPILUMAB
     Indication: DERMATITIS ATOPIC
  4. COSENTYX [Concomitant]
     Active Substance: SECUKINUMAB
     Indication: PSORIASIS
  5. PEPCID [Concomitant]
     Active Substance: FAMOTIDINE

REACTIONS (5)
  - Pain [Unknown]
  - Alopecia [Unknown]
  - Product use in unapproved indication [Unknown]
  - Madarosis [Unknown]
  - Erythema [Unknown]
